FAERS Safety Report 9507958 (Version 1)
Quarter: 2013Q4

REPORT INFORMATION
  Report Type: Spontaneous
  Country: US (occurrence: None)
  Receive Date: 20130906
  Receipt Date: 20130906
  Transmission Date: 20140711
  Serious: Yes (Hospitalization)
  Sender: FDA-Public Use
  Company Number: None

PATIENT
  Age: 64 Year
  Sex: Female
  Weight: 112 kg

DRUGS (2)
  1. PLERIXAFOR [Suspect]
     Indication: MYELODYSPLASTIC SYNDROME
     Dosage: 560 MCG/KG/D X 5
     Dates: start: 20130621
  2. AZACITADINE [Suspect]
     Indication: MYELODYSPLASTIC SYNDROME

REACTIONS (5)
  - Feeling abnormal [None]
  - Pyrexia [None]
  - Productive cough [None]
  - Sputum discoloured [None]
  - Dyspnoea [None]
